FAERS Safety Report 5315532-1 (Version None)
Quarter: 2007Q2

REPORT INFORMATION
  Report Type: 
  Country: None (occurrence: None)
  Receive Date: 20070503
  Receipt Date: 20070420
  Transmission Date: 20071010
  Serious: Yes (Hospitalization)
  Sender: FDA-Public Use
  Company Number: GB-PFIZER INC-2006103409

PATIENT
  Sex: Male
  Weight: 77 kg

DRUGS (13)
  1. SU-011,248 [Suspect]
     Indication: RENAL CELL CARCINOMA STAGE UNSPECIFIED
     Route: 048
  2. SU-011,248 [Suspect]
  3. ACETYLSALICYLIC ACID SRT [Concomitant]
  4. ALFUZOSIN [Concomitant]
  5. ONDASETRON [Concomitant]
  6. AMLODIPINE [Concomitant]
  7. PARACETAMOL [Concomitant]
  8. ISOSORBIDE MONONITRATE [Concomitant]
  9. FERROUS SULFATE TAB [Concomitant]
  10. DOSULEPIN [Concomitant]
  11. SERETIDE [Concomitant]
  12. TRAMADOL HCL [Concomitant]
  13. DICLOFENAC [Concomitant]

REACTIONS (2)
  - ANAEMIA [None]
  - HYPERCALCAEMIA [None]
